FAERS Safety Report 8900033 (Version 1)
Quarter: 2012Q4

REPORT INFORMATION
  Report Type: 
  Country: CA (occurrence: CA)
  Receive Date: 20121109
  Receipt Date: 20121109
  Transmission Date: 20130627
  Serious: Yes (Other)
  Sender: FDA-Public Use
  Company Number: PHHY2012CA099835

PATIENT
  Age: 49 Year
  Sex: Female

DRUGS (5)
  1. PAMIDRONATE [Suspect]
     Indication: BREAST CANCER METASTATIC
     Dosage: 90 mg, q monthly-3 monthly
     Route: 042
     Dates: start: 20110307
  2. LETROZOLE [Suspect]
     Indication: BREAST CANCER
     Dosage: 2.5 mg, QD
     Route: 048
  3. TAMOXIFEN [Suspect]
     Indication: BREAST CANCER
  4. ZOLADEX [Suspect]
     Indication: BREAST CANCER
     Dosage: UNK UKN, UNK
  5. CLODRONIC ACID [Suspect]
     Indication: BREAST CANCER
     Dosage: UNK UKN, UNK

REACTIONS (5)
  - Neoplasm progression [Unknown]
  - Malignant neoplasm progression [Unknown]
  - Influenza like illness [Unknown]
  - Drug intolerance [Unknown]
  - Myalgia [Unknown]
